FAERS Safety Report 19381750 (Version 1)
Quarter: 2021Q2

REPORT INFORMATION
  Report Type: Spontaneous
  Country: GB (occurrence: GB)
  Receive Date: 20210607
  Receipt Date: 20210607
  Transmission Date: 20210717
  Serious: Yes (Hospitalization)
  Sender: FDA-Public Use
  Company Number: GB-VERTEX PHARMACEUTICALS-2021-008595

PATIENT
  Sex: Female

DRUGS (4)
  1. SYMKEVI [Suspect]
     Active Substance: IVACAFTOR\TEZACAFTOR
     Indication: CYSTIC FIBROSIS
     Dosage: 1 DOSAGE FORM, QD (100/150MG, DAILY)
     Route: 048
  2. PULMOZYME [Concomitant]
     Active Substance: DORNASE ALFA
  3. KALYDECO [Suspect]
     Active Substance: IVACAFTOR
     Indication: CYSTIC FIBROSIS
     Dosage: 150 MG, QD (DAILY)
     Route: 048
  4. TOBI PODHALER [Concomitant]
     Active Substance: TOBRAMYCIN

REACTIONS (3)
  - Hospitalisation [Unknown]
  - Speech disorder [Not Recovered/Not Resolved]
  - Malaise [Not Recovered/Not Resolved]
